FAERS Safety Report 4427644-5 (Version None)
Quarter: 2004Q3

REPORT INFORMATION
  Report Type: 
  Country: None (occurrence: None)
  Receive Date: 20040817
  Receipt Date: 20040729
  Transmission Date: 20050211
  Serious: Yes (Hospitalization)
  Sender: FDA-Public Use
  Company Number: JP-MERCK-0408USA00175

PATIENT
  Age: 85 Year
  Sex: Female
  Weight: 38 kg

DRUGS (4)
  1. BROACT [Suspect]
     Indication: BRONCHITIS ACUTE
     Route: 041
     Dates: start: 20040702, end: 20040708
  2. PRIMAXIN [Suspect]
     Indication: BRONCHITIS ACUTE
     Route: 041
     Dates: start: 20040709, end: 20040709
  3. PRIMAXIN [Suspect]
     Route: 041
     Dates: start: 20040628, end: 20040701
  4. PIPERACILLIN SODIUM [Concomitant]
     Indication: BRONCHITIS ACUTE
     Route: 042
     Dates: start: 20040625, end: 20040628

REACTIONS (6)
  - C-REACTIVE PROTEIN INCREASED [None]
  - GRANULOCYTE COUNT DECREASED [None]
  - HAEMATOCRIT DECREASED [None]
  - HAEMOGLOBIN DECREASED [None]
  - RED BLOOD CELL COUNT DECREASED [None]
  - WHITE BLOOD CELL COUNT DECREASED [None]
